FAERS Safety Report 4365425-1 (Version None)
Quarter: 2004Q2

REPORT INFORMATION
  Report Type: 
  Country: None (occurrence: None)
  Receive Date: 20040520
  Receipt Date: 20040507
  Transmission Date: 20050107
  Serious: Yes (Hospitalization, Other)
  Sender: FDA-Public Use
  Company Number: 2004031291

PATIENT
  Age: 24 Month
  Sex: Male
  Weight: 15 kg

DRUGS (1)
  1. VIAGRA [Suspect]
     Indication: ILL-DEFINED DISORDER
     Dosage: 50 MG, ORAL
     Route: 048

REACTIONS (9)
  - BLOOD PRESSURE DECREASED [None]
  - DIARRHOEA [None]
  - EXCORIATION [None]
  - FLUSHING [None]
  - HEART RATE INCREASED [None]
  - PENILE PAIN [None]
  - PENIS DISORDER [None]
  - RHONCHI [None]
  - VOMITING [None]
